FAERS Safety Report 11223845 (Version 30)
Quarter: 2018Q1

REPORT INFORMATION
  Report Type: Report from Study
  Country: CA (occurrence: CA)
  Receive Date: 20150629
  Receipt Date: 20180319
  Transmission Date: 20180508
  Serious: Yes (Other)
  Sender: FDA-Public Use
  Company Number: CA-ROCHE-1580844

PATIENT
  Age: 75 Year
  Sex: Male
  Weight: 55 kg

DRUGS (15)
  1. ACTEMRA [Suspect]
     Active Substance: TOCILIZUMAB
     Route: 042
     Dates: start: 20180305
  2. VITAMIN B12 [Concomitant]
     Active Substance: CYANOCOBALAMIN
  3. OMEPRAZOLE. [Concomitant]
     Active Substance: OMEPRAZOLE
  4. SULFASALAZINE. [Concomitant]
     Active Substance: SULFASALAZINE
  5. CITALOPRAM [Concomitant]
     Active Substance: CITALOPRAM HYDROBROMIDE
  6. ACTEMRA [Suspect]
     Active Substance: TOCILIZUMAB
     Indication: RHEUMATOID ARTHRITIS
     Dosage: DATE OF LAST DATE OF TOCILIZUMAB PRIOR TO EVENT LOW PULSE RATE- 19/MAY/2015
     Route: 042
     Dates: start: 20150422
  7. VITAMIN C [Concomitant]
     Active Substance: ASCORBIC ACID
  8. VITAMIN D3 [Concomitant]
     Active Substance: CHOLECALCIFEROL
  9. ATORVASTATIN [Concomitant]
     Active Substance: ATORVASTATIN
  10. VITAMIN A [Concomitant]
     Active Substance: VITAMIN A
  11. VALSARTAN. [Concomitant]
     Active Substance: VALSARTAN
  12. METOPROLOL. [Suspect]
     Active Substance: METOPROLOL
     Indication: PRODUCT USED FOR UNKNOWN INDICATION
     Route: 065
  13. ACTEMRA [Suspect]
     Active Substance: TOCILIZUMAB
     Indication: TEMPORAL ARTERITIS
     Route: 042
     Dates: start: 20161017
  14. PREDNISONE. [Concomitant]
     Active Substance: PREDNISONE
  15. SPIRIVA [Concomitant]
     Active Substance: TIOTROPIUM BROMIDE MONOHYDRATE

REACTIONS (37)
  - Influenza [Not Recovered/Not Resolved]
  - Weight decreased [Unknown]
  - Respiratory tract infection [Recovered/Resolved]
  - Hypotension [Unknown]
  - Renal impairment [Unknown]
  - Heart rate decreased [Unknown]
  - Cough [Not Recovered/Not Resolved]
  - Hypotension [Unknown]
  - Rhinorrhoea [Recovering/Resolving]
  - Chills [Recovering/Resolving]
  - Off label use [Unknown]
  - Dizziness [Recovered/Resolved]
  - Blood pressure increased [Unknown]
  - Rheumatoid arthritis [Not Recovered/Not Resolved]
  - Cough [Not Recovered/Not Resolved]
  - Blood pressure fluctuation [Unknown]
  - Infusion related reaction [Recovering/Resolving]
  - Scratch [Recovered/Resolved]
  - Pain [Not Recovered/Not Resolved]
  - Productive cough [Recovering/Resolving]
  - Headache [Unknown]
  - Eye pain [Recovered/Resolved]
  - Diabetes mellitus [Unknown]
  - Glaucoma [Unknown]
  - Intentional product use issue [Unknown]
  - Heart rate decreased [Unknown]
  - Muscle strain [Not Recovered/Not Resolved]
  - Pain in extremity [Not Recovered/Not Resolved]
  - Peripheral swelling [Recovering/Resolving]
  - Pneumonia [Recovered/Resolved]
  - Blood iron decreased [Unknown]
  - Blood pressure increased [Unknown]
  - Lower respiratory tract congestion [Unknown]
  - Eczema [Not Recovered/Not Resolved]
  - Arthralgia [Not Recovered/Not Resolved]
  - Blood test abnormal [Unknown]
  - Rash [Not Recovered/Not Resolved]

NARRATIVE: CASE EVENT DATE: 20150519
